FAERS Safety Report 6168677-0 (Version None)
Quarter: 2009Q2

REPORT INFORMATION
  Report Type: 
  Country: None (occurrence: None)
  Receive Date: 20090427
  Receipt Date: 20090414
  Transmission Date: 20091009
  Serious: Yes (Hospitalization)
  Sender: FDA-Public Use
  Company Number: US-TYCO HEALTHCARE/MALLINCKRODT-T200900829

PATIENT
  Age: 50 Year
  Sex: Female
  Weight: 54.875 kg

DRUGS (5)
  1. OXYCODONE HCL EXTENDED-RELEASE [Suspect]
     Indication: SPINAL COLUMN STENOSIS
     Dosage: 40 MG, TID
     Route: 048
     Dates: start: 20090201, end: 20090319
  2. PREMPRO [Concomitant]
     Dosage: UNK
     Route: 048
  3. LEXAPRO [Concomitant]
     Dosage: UNK
     Route: 048
  4. VALTREX [Concomitant]
     Dosage: 350 MG, QD
     Route: 048
  5. XANAX [Concomitant]
     Dosage: 15 MG, TID

REACTIONS (7)
  - ASTHENIA [None]
  - DIARRHOEA [None]
  - FATIGUE [None]
  - HEADACHE [None]
  - HYPOVENTILATION [None]
  - MALAISE [None]
  - WITHDRAWAL SYNDROME [None]
